FAERS Safety Report 9404285 (Version 1)
Quarter: 2013Q3

REPORT INFORMATION
  Report Type: Spontaneous
  Country: US (occurrence: None)
  Receive Date: 20130711
  Receipt Date: 20130711
  Transmission Date: 20140515
  Serious: Yes (Hospitalization)
  Sender: FDA-Public Use
  Company Number: 1793179

PATIENT
  Age: 83 Year
  Sex: Male

DRUGS (14)
  1. HEPARIN SODIUM [Suspect]
     Indication: PULMONARY EMBOLISM
  2. HEPARIN SODIUM [Suspect]
     Indication: ATRIAL FIBRILLATION
  3. HEPARIN SODIUM [Suspect]
     Indication: PULMONARY EMBOLISM
  4. HEPARIN SODIUM [Suspect]
  5. ASPIRIN [Suspect]
     Indication: CORONARY ARTERY DISEASE
  6. ISOSORBIDE DINITRATE) [Concomitant]
  7. TIOTROPIUM BROMIDE [Concomitant]
  8. LEVOTHYROXINE [Concomitant]
  9. COUMADIN [Concomitant]
  10. FLUTICASONE [Concomitant]
  11. FUROSEMIDE [Concomitant]
  12. METOPROLOL [Concomitant]
  13. SIMVASTATIN [Concomitant]
  14. HYDRALIZINE [Concomitant]

REACTIONS (8)
  - Purpura [None]
  - Platelet count decreased [None]
  - International normalised ratio increased [None]
  - Blood creatinine increased [None]
  - Haemoglobin decreased [None]
  - Activated partial thromboplastin time prolonged [None]
  - Dermatitis bullous [None]
  - Drug interaction [None]
